FAERS Safety Report 9321732 (Version 1)
Quarter: 2013Q2

REPORT INFORMATION
  Report Type: Spontaneous
  Country: ES (occurrence: None)
  Receive Date: 20130529
  Receipt Date: 20130529
  Transmission Date: 20140414
  Serious: Yes (Life-Threatening, Hospitalization)
  Sender: FDA-Public Use
  Company Number: IND1-ES-2013-0038

PATIENT
  Age: 54 Year
  Sex: Male

DRUGS (5)
  1. INACID RETARD [Suspect]
     Indication: BACK PAIN
     Dosage: 75 MG (1 IN 1 D)
     Route: 048
     Dates: start: 20130403
  2. PLENUR [Suspect]
     Indication: BIPOLAR DISORDER
     Route: 048
     Dates: start: 2007
  3. HALOPERIDOL(HALOPERIDOL)(UNKNOWN)(HALOPERIDOL) [Concomitant]
  4. INALADUO ACCUHALER 50(SERETIDE)(INHALANT)(FLUTICASONE PROPIONATE, SALMETEROL XINAFOATE) [Concomitant]
  5. VENTOLIN 100(SALBUTAMOL)(100 MICROGRAM, INHALANT)(SALBUTAMOL) [Concomitant]

REACTIONS (4)
  - Coma [None]
  - Hypernatraemia [None]
  - Hyperammonaemia [None]
  - Nephrogenic diabetes insipidus [None]
